FAERS Safety Report 4429354-7 (Version None)
Quarter: 2004Q3

REPORT INFORMATION
  Report Type: 
  Country: None (occurrence: None)
  Receive Date: 20040818
  Receipt Date: 20040803
  Transmission Date: 20050211
  Serious: Yes (Death)
  Sender: FDA-Public Use
  Company Number: 2004-DE-04215GD

PATIENT
  Age: 16 Year
  Sex: Female
  Weight: 48 kg

DRUGS (4)
  1. CYCLOPHOSPHAMIDE [Suspect]
     Indication: RHABDOMYOSARCOMA
     Dosage: NR (NR), NR
     Route: 065
  2. VINCRISTINE [Suspect]
     Indication: RHABDOMYOSARCOMA
     Dosage: NR (NR), NR
     Route: 065
  3. ACTINOMYCIN (ACTINOMYCINES) [Suspect]
     Indication: RHABDOMYOSARCOMA
     Dosage: NR (NR), NR
     Route: 065
  4. GRANULOCYTE CLONY STIMULATING FACTOR (GRANULOCYTE COLONY STIMULATING F [Concomitant]

REACTIONS (27)
  - BRADYCARDIA [None]
  - CARDIAC ARREST [None]
  - DISORIENTATION [None]
  - DISSEMINATED INTRAVASCULAR COAGULATION [None]
  - DYSPNOEA [None]
  - ESCHAR [None]
  - FIBROSIS [None]
  - INFECTION [None]
  - LARYNGOSCOPY ABNORMAL [None]
  - LARYNGOSPASM [None]
  - LETHARGY [None]
  - LOCALISED OEDEMA [None]
  - MUCOSAL INFLAMMATION [None]
  - MUCOSAL ULCERATION [None]
  - MULTI-ORGAN FAILURE [None]
  - NECROSIS [None]
  - NEUTROPENIA [None]
  - OBSTRUCTIVE AIRWAYS DISORDER [None]
  - ORAL PAIN [None]
  - OROPHARYNGEAL SWELLING [None]
  - OXYGEN SATURATION DECREASED [None]
  - PHARYNGOLARYNGEAL PAIN [None]
  - PLATELET COUNT DECREASED [None]
  - STOMATITIS [None]
  - TACHYCARDIA [None]
  - TONSILLAR HYPERTROPHY [None]
  - WHITE BLOOD CELL COUNT DECREASED [None]
